FAERS Safety Report 8367098-X (Version None)
Quarter: 2012Q2

REPORT INFORMATION
  Report Type: 
  Country: None (occurrence: None)
  Receive Date: 20120517
  Receipt Date: 20120510
  Transmission Date: 20120825
  Serious: Yes (Other)
  Sender: FDA-Public Use
  Company Number: CA-UCBSA-057204

PATIENT
  Age: 27 Year
  Sex: Female
  Weight: 43 kg

DRUGS (7)
  1. CLONAZEPAM [Concomitant]
     Indication: INSOMNIA
     Dosage: HS PRN
     Route: 048
  2. PANTOPRAZOLE SODIUM [Concomitant]
     Route: 048
  3. BISOPROLOL FUMARATE [Concomitant]
     Indication: HYPERTENSION
     Route: 048
  4. DILAUDID [Concomitant]
     Indication: PAIN
     Route: 048
  5. CIMZIA [Suspect]
     Indication: CROHN'S DISEASE
     Route: 058
     Dates: start: 20110208, end: 20120101
  6. METHOTREXATE [Concomitant]
     Indication: CROHN'S DISEASE
     Route: 048
     Dates: start: 20090601
  7. CIMZIA [Suspect]
     Route: 058
     Dates: start: 20090601, end: 20101214

REACTIONS (1)
  - MONONUCLEOSIS SYNDROME [None]
